FAERS Safety Report 8295498-5 (Version None)
Quarter: 2012Q2

REPORT INFORMATION
  Report Type: 
  Country: None (occurrence: None)
  Receive Date: 20120413
  Receipt Date: 20120330
  Transmission Date: 20120825
  Serious: Yes (Other)
  Sender: FDA-Public Use
  Company Number: SAN_00066_2012

PATIENT
  Age: 62 Year
  Sex: Female

DRUGS (2)
  1. METFORMIN HCL [Suspect]
     Indication: TYPE 2 DIABETES MELLITUS
     Dosage: 500 MG, QD, ORAL
     Route: 048
  2. GLICLAZIDE [Concomitant]

REACTIONS (2)
  - POST PROCEDURAL COMPLICATION [None]
  - GASTROINTESTINAL STOMA COMPLICATION [None]
